FAERS Safety Report 24407740 (Version 1)
Quarter: 2024Q4

REPORT INFORMATION
  Report Type: Spontaneous
  Country: DE (occurrence: DE)
  Receive Date: 20241007
  Receipt Date: 20241007
  Transmission Date: 20250115
  Serious: Yes (Hospitalization, Other)
  Sender: MYLAN
  Company Number: DE-ABBVIE-5929809

PATIENT
  Age: 20 Year
  Sex: Male

DRUGS (5)
  1. BUDESONIDE [Suspect]
     Active Substance: BUDESONIDE
     Indication: Product used for unknown indication
     Dosage: UNK
     Route: 065
  2. USTEKINUMAB [Suspect]
     Active Substance: USTEKINUMAB
     Indication: Product used for unknown indication
     Dosage: UNK
     Route: 065
  3. RINVOQ [Suspect]
     Active Substance: UPADACITINIB
     Indication: Product used for unknown indication
     Dosage: UNK
     Route: 048
  4. MERCAPTOPURINE [Concomitant]
     Active Substance: MERCAPTOPURINE
     Indication: Product used for unknown indication
     Dosage: UNK
     Route: 065
  5. PREDNISOLONE [Concomitant]
     Active Substance: PREDNISOLONE
     Indication: Product used for unknown indication
     Dosage: UNK
     Route: 065

REACTIONS (16)
  - Gastrointestinal motility disorder [Unknown]
  - Large intestine perforation [Unknown]
  - Megacolon [Unknown]
  - Colitis ulcerative [Unknown]
  - Crohn^s disease [Unknown]
  - Abscess intestinal [Unknown]
  - Terminal ileitis [Unknown]
  - Large intestinal ulcer [Unknown]
  - Inflammatory bowel disease [Unknown]
  - Gastrointestinal disorder [Unknown]
  - Colectomy [Unknown]
  - Unevaluable event [Unknown]
  - Iron deficiency anaemia [Unknown]
  - Anamnestic reaction [Unknown]
  - Gastrooesophageal reflux disease [Unknown]
  - Therapeutic product effect decreased [Unknown]
